FAERS Safety Report 8294684-8 (Version None)
Quarter: 2012Q2

REPORT INFORMATION
  Report Type: 
  Country: None (occurrence: None)
  Receive Date: 20120418
  Receipt Date: 20120412
  Transmission Date: 20120825
  Serious: Yes (Life-Threatening, Disabling)
  Sender: FDA-Public Use
  Company Number: JP-ASTELLAS-2012JP002526

PATIENT
  Sex: Female

DRUGS (5)
  1. FERROUS CITRATE [Concomitant]
     Dosage: 1 DF, UID/QD
     Route: 048
     Dates: start: 20110722
  2. SHAKUYAKUKANZOUTOU [Suspect]
     Indication: BACK PAIN
     Dosage: 1 DF, TID
     Route: 048
     Dates: start: 20111205
  3. PRAVASTATIN SODIUM [Concomitant]
     Dosage: 1 DF, UID/QD
     Route: 048
     Dates: start: 20110209
  4. VESICARE [Suspect]
     Indication: HYPERTONIC BLADDER
     Dosage: 5 MG, UID/QD
     Route: 048
     Dates: start: 20111025
  5. VESICARE [Suspect]
     Indication: POLLAKIURIA

REACTIONS (5)
  - ELECTROCARDIOGRAM QT PROLONGED [None]
  - VENTRICULAR FIBRILLATION [None]
  - SYNCOPE [None]
  - HYPOKALAEMIA [None]
  - CARDIAC ARREST [None]
